FAERS Safety Report 15222407 (Version 9)
Quarter: 2018Q4

REPORT INFORMATION
  Report Type: Spontaneous
  Country: JP (occurrence: JP)
  Receive Date: 20180731
  Receipt Date: 20181126
  Transmission Date: 20190204
  Serious: Yes (Other)
  Sender: FDA-Public Use
  Company Number: JP-PFIZER INC-2018300266

PATIENT
  Age: 8 Year
  Sex: Male
  Weight: 15.85 kg

DRUGS (10)
  1. PREDONINE [Suspect]
     Active Substance: PREDNISOLONE
     Indication: ACUTE LYMPHOCYTIC LEUKAEMIA
     Dosage: 8 MG, 3X/DAY
     Dates: start: 20180719, end: 20180722
  2. ASTRIC [Concomitant]
     Active Substance: ACYCLOVIR
     Indication: HERPES VIRUS INFECTION
     Dosage: 100 MG, 1X/DAY
     Route: 048
     Dates: start: 20180719, end: 20180724
  3. URSODEOXYCHOLIC ACID [Concomitant]
     Active Substance: URSODIOL
     Indication: LIVER DISORDER
     Dosage: 200 MG, 3X/DAY
     Route: 048
     Dates: start: 20170719
  4. ELNEOPA [Concomitant]
     Active Substance: UNSPECIFIED INGREDIENT
     Indication: FLUID REPLACEMENT
     Dosage: 1000 ML, 1X/DAY
     Dates: start: 20180724, end: 20180801
  5. DAIPHEN [Concomitant]
     Active Substance: SULFAMETHOXAZOLE\TRIMETHOPRIM
     Indication: PNEUMOCYSTIS JIROVECII PNEUMONIA
     Dosage: 0.6 G, 1X/DAY
     Route: 048
     Dates: start: 20180719
  6. BESPONSA [Suspect]
     Active Substance: INOTUZUMAB OZOGAMICIN
     Indication: ACUTE LYMPHOCYTIC LEUKAEMIA
     Dosage: 0.8 MG/M2, DAILY
     Route: 041
     Dates: start: 20180724, end: 20180724
  7. PREDONINE [Suspect]
     Active Substance: PREDNISOLONE
     Dosage: 16 MG, 3X/DAY
     Dates: start: 20180723
  8. VFEND [Concomitant]
     Active Substance: VORICONAZOLE
     Indication: FUNGAL INFECTION
     Dosage: .160 MG, DAILY
     Route: 048
     Dates: start: 20180719
  9. FAMOTIDINE. [Concomitant]
     Active Substance: FAMOTIDINE
     Indication: RENAL DISORDER
     Dosage: 10 G, 2X/DAY
     Dates: start: 20180719, end: 20180728
  10. FEBURIC [Concomitant]
     Active Substance: FEBUXOSTAT
     Indication: HYPERLIPIDAEMIA
     Dosage: 20 G, 1X/DAY
     Dates: start: 20180719, end: 20180809

REACTIONS (12)
  - Heart rate decreased [Unknown]
  - Neoplasm progression [Not Recovered/Not Resolved]
  - Pain in jaw [Not Recovered/Not Resolved]
  - Product use issue [Unknown]
  - Blood lactate dehydrogenase increased [Unknown]
  - Pancreatitis [Recovered/Resolved]
  - Liver disorder [Not Recovered/Not Resolved]
  - Blood glucose increased [Unknown]
  - Pain in extremity [Not Recovered/Not Resolved]
  - Blood pressure ambulatory increased [Recovering/Resolving]
  - Liver disorder [Recovered/Resolved]
  - Ascites [Recovered/Resolved]

NARRATIVE: CASE EVENT DATE: 2018
